FAERS Safety Report 21064134 (Version 2)
Quarter: 2022Q3

REPORT INFORMATION
  Report Type: Spontaneous
  Country: JP (occurrence: JP)
  Receive Date: 20220711
  Receipt Date: 20220721
  Transmission Date: 20221027
  Serious: Yes (Death, Hospitalization, Other)
  Sender: FDA-Public Use
  Company Number: JP-TAKEDA-2022TJP060949

PATIENT
  Age: 59 Year
  Sex: Male
  Weight: 66 kg

DRUGS (12)
  1. VONOPRAZAN FUMARATE [Suspect]
     Active Substance: VONOPRAZAN FUMARATE
     Indication: Prophylaxis
     Dosage: UNK UNK, QD
     Route: 048
     Dates: start: 202009
  2. FEBUXOSTAT [Suspect]
     Active Substance: FEBUXOSTAT
     Indication: Product used for unknown indication
     Dosage: UNK
     Route: 048
  3. BLINCYTO [Suspect]
     Active Substance: BLINATUMOMAB
     Indication: B precursor type acute leukaemia
     Dosage: 9 MICROGRAM, QD
     Route: 042
     Dates: start: 20210914, end: 20210920
  4. BLINCYTO [Suspect]
     Active Substance: BLINATUMOMAB
     Dosage: 28 MICROGRAM, QD
     Route: 042
     Dates: start: 20210921, end: 20211012
  5. BLINCYTO [Suspect]
     Active Substance: BLINATUMOMAB
     Dosage: UNK UNK, QD
     Route: 042
     Dates: end: 20211017
  6. VALACYCLOVIR HYDROCHLORIDE [Suspect]
     Active Substance: VALACYCLOVIR HYDROCHLORIDE
     Indication: Prophylaxis
     Dosage: UNK
     Route: 065
     Dates: start: 202009
  7. IFOSFAMIDE [Concomitant]
     Active Substance: IFOSFAMIDE
     Dosage: UNK
  8. CISPLATIN [Concomitant]
     Active Substance: CISPLATIN
     Dosage: UNK
  9. ETOPOSIDE [Concomitant]
     Active Substance: ETOPOSIDE
     Dosage: UNK
  10. RITUXIMAB [Concomitant]
     Active Substance: RITUXIMAB
     Dosage: UNK
  11. CARBOPLATIN [Concomitant]
     Active Substance: CARBOPLATIN
     Dosage: UNK
  12. SULFAMETHOXAZOLE\TRIMETHOPRIM [Concomitant]
     Active Substance: SULFAMETHOXAZOLE\TRIMETHOPRIM
     Dosage: UNK

REACTIONS (8)
  - Acute lymphocytic leukaemia recurrent [Fatal]
  - Myelosuppression [Recovered/Resolved]
  - Tumour lysis syndrome [Recovered/Resolved]
  - Cytokine release syndrome [Recovered/Resolved]
  - Liver disorder [Recovered/Resolved]
  - Coagulopathy [Recovered/Resolved]
  - Pain in extremity [Recovered/Resolved]
  - Pyrexia [Recovering/Resolving]
